FAERS Safety Report 17800863 (Version 1)
Quarter: 2020Q2

REPORT INFORMATION
  Report Type: Spontaneous
  Country: FR (occurrence: FR)
  Receive Date: 20200518
  Receipt Date: 20200518
  Transmission Date: 20200714
  Serious: Yes (Other)
  Sender: FDA-Public Use
  Company Number: FR-ABBVIE-20K-056-3406887-00

PATIENT
  Age: 63 Year
  Sex: Male
  Weight: 90 kg

DRUGS (8)
  1. EUPRESSYL [Suspect]
     Active Substance: URAPIDIL
     Indication: HYPERTENSION
     Route: 042
     Dates: start: 20200321, end: 20200327
  2. SUFENTANIL [Concomitant]
     Active Substance: SUFENTANIL
     Indication: PRODUCT USED FOR UNKNOWN INDICATION
  3. INSULINE [Concomitant]
     Active Substance: INSULIN NOS
     Indication: PRODUCT USED FOR UNKNOWN INDICATION
  4. PROPOFOL. [Concomitant]
     Active Substance: PROPOFOL
     Indication: PRODUCT USED FOR UNKNOWN INDICATION
  5. CISATRACURIUM MYLAN [Suspect]
     Active Substance: CISATRACURIUM
     Indication: SEDATION
     Route: 042
     Dates: start: 20200321, end: 20200401
  6. ROVAMYCINE [Suspect]
     Active Substance: SPIRAMYCIN
     Indication: LUNG DISORDER
     Route: 042
     Dates: start: 20200321, end: 20200327
  7. HEPARINE SODIQUE [Concomitant]
     Active Substance: HEPARIN SODIUM
     Indication: PRODUCT USED FOR UNKNOWN INDICATION
  8. KALETRA [Suspect]
     Active Substance: LOPINAVIR\RITONAVIR
     Indication: CORONAVIRUS INFECTION
     Route: 048
     Dates: start: 20200321, end: 20200328

REACTIONS (1)
  - Cholestasis [Recovered/Resolved]

NARRATIVE: CASE EVENT DATE: 20200325
